FAERS Safety Report 8488334-5 (Version None)
Quarter: 2012Q3

REPORT INFORMATION
  Report Type: 
  Country: None (occurrence: None)
  Receive Date: 20120705
  Receipt Date: 20120626
  Transmission Date: 20120928
  Serious: Yes (Hospitalization, Other)
  Sender: FDA-Public Use
  Company Number: FR-JNJFOC-20120500921

PATIENT
  Sex: Female

DRUGS (14)
  1. REMICADE [Suspect]
     Indication: CROHN'S DISEASE
     Route: 042
     Dates: start: 20110120
  2. IMURAN [Concomitant]
     Route: 065
  3. REMICADE [Suspect]
     Route: 042
     Dates: start: 20101203
  4. REMICADE [Suspect]
     Route: 042
     Dates: start: 20110520
  5. REMICADE [Suspect]
     Route: 042
     Dates: start: 20120106, end: 20120106
  6. REMICADE [Suspect]
     Route: 042
     Dates: start: 20101217
  7. REMICADE [Suspect]
     Route: 042
     Dates: start: 20120217
  8. CETIRIZINE [Concomitant]
     Route: 065
  9. REMICADE [Suspect]
     Route: 042
     Dates: start: 20110926
  10. REMICADE [Suspect]
     Route: 042
     Dates: start: 20111104
  11. REMICADE [Suspect]
     Route: 042
     Dates: start: 20120330, end: 20120330
  12. CORTICOSTEROIDS [Concomitant]
     Route: 065
  13. REMICADE [Suspect]
     Route: 042
     Dates: start: 20110624
  14. REMICADE [Suspect]
     Route: 042
     Dates: start: 20110303

REACTIONS (4)
  - CROHN'S DISEASE [None]
  - PAIN IN EXTREMITY [None]
  - PAIN [None]
  - MUSCULOSKELETAL PAIN [None]
